FAERS Safety Report 8883643 (Version 1)
Quarter: 2012Q4

REPORT INFORMATION
  Report Type: 
  Country: US (occurrence: US)
  Receive Date: 20121102
  Receipt Date: 20121102
  Transmission Date: 20130627
  Serious: Yes (Disabling)
  Sender: FDA-Public Use
  Company Number: US-INCYTE CORPORATION-2012IN001757

PATIENT
  Age: 72 Year
  Sex: Female
  Weight: 69.84 kg

DRUGS (4)
  1. JAKAFI [Suspect]
     Indication: MYELOFIBROSIS
     Dosage: 20 mg, qod
     Route: 048
     Dates: start: 20120223
  2. CYMBALTA [Concomitant]
     Indication: DEPRESSION
     Dosage: 30 mg, qd
  3. LOSARTAN [Concomitant]
     Indication: HYPERTENSION
     Dosage: 100 mg, qd
  4. VITAMINS NOS [Concomitant]

REACTIONS (1)
  - Herpes zoster [Recovered/Resolved]
